FAERS Safety Report 20359162 (Version 2)
Quarter: 2022Q1

REPORT INFORMATION
  Report Type: Spontaneous
  Country: US (occurrence: US)
  Receive Date: 20220120
  Receipt Date: 20220126
  Transmission Date: 20220423
  Serious: Yes (Other)
  Sender: FDA-Public Use
  Company Number: US-drreddys-LIT/USA/22/0146001

PATIENT
  Age: 78 Year
  Sex: Female

DRUGS (5)
  1. DOXORUBICIN HYDROCHLORIDE [Suspect]
     Active Substance: DOXORUBICIN HYDROCHLORIDE
     Indication: Angioimmunoblastic T-cell lymphoma
  2. CYCLOPHOSPHAMIDE [Suspect]
     Active Substance: CYCLOPHOSPHAMIDE
     Indication: Angioimmunoblastic T-cell lymphoma
  3. ETOPOSIDE [Suspect]
     Active Substance: ETOPOSIDE
     Indication: Angioimmunoblastic T-cell lymphoma
  4. VINCRISTINE [Suspect]
     Active Substance: VINCRISTINE
     Indication: Angioimmunoblastic T-cell lymphoma
  5. PREDNISONE [Suspect]
     Active Substance: PREDNISONE
     Indication: Angioimmunoblastic T-cell lymphoma

REACTIONS (1)
  - Drug ineffective [Unknown]
